FAERS Safety Report 23050615 (Version 1)
Quarter: 2023Q4

REPORT INFORMATION
  Report Type: Spontaneous
  Country: AU (occurrence: None)
  Receive Date: 20231010
  Receipt Date: 20231010
  Transmission Date: 20240110
  Serious: Yes (Other)
  Sender: FDA-Public Use
  Company Number: 2023A226333

PATIENT
  Age: 72 Year
  Sex: Female

DRUGS (1)
  1. DAPAGLIFLOZIN [Suspect]
     Active Substance: DAPAGLIFLOZIN
     Indication: Type 2 diabetes mellitus
     Route: 048

REACTIONS (5)
  - Pneumonia [Unknown]
  - Diarrhoea [Unknown]
  - Thirst [Unknown]
  - Weight decreased [Unknown]
  - Pollakiuria [Unknown]
